FAERS Safety Report 14071032 (Version 2)
Quarter: 2018Q4

REPORT INFORMATION
  Report Type: Spontaneous
  Country: US (occurrence: US)
  Receive Date: 20171010
  Receipt Date: 20181120
  Transmission Date: 20190204
  Serious: No
  Sender: FDA-Public Use
  Company Number: US-JNJFOC-20170921145

PATIENT
  Age: 76 Year
  Sex: Male

DRUGS (19)
  1. ALLOPURINOL. [Concomitant]
     Active Substance: ALLOPURINOL
  2. POTASSIUM [Concomitant]
     Active Substance: POTASSIUM
  3. MULTIVITAMINS [Concomitant]
     Active Substance: VITAMINS
  4. DILTIAZEM. [Concomitant]
     Active Substance: DILTIAZEM
  5. ALBUTEROL. [Concomitant]
     Active Substance: ALBUTEROL
  6. FENOFIBRATE. [Concomitant]
     Active Substance: FENOFIBRATE
  7. SPIRIVA [Concomitant]
     Active Substance: TIOTROPIUM BROMIDE MONOHYDRATE
  8. DALIRESP [Concomitant]
     Active Substance: ROFLUMILAST
  9. PROVENTIL [Concomitant]
     Active Substance: ALBUTEROL
  10. COUMADIN [Suspect]
     Active Substance: WARFARIN SODIUM
     Indication: PRODUCT USED FOR UNKNOWN INDICATION
     Route: 065
  11. NASONEX [Concomitant]
     Active Substance: MOMETASONE FUROATE
  12. METOPROLOL SUCCINATE. [Concomitant]
     Active Substance: METOPROLOL SUCCINATE
  13. IMBRUVICA [Suspect]
     Active Substance: IBRUTINIB
     Indication: CHRONIC LYMPHOCYTIC LEUKAEMIA
     Dosage: 420 UNK,UNK
     Route: 065
     Dates: start: 2017
  14. OMEPRAZOLE. [Concomitant]
     Active Substance: OMEPRAZOLE
  15. MUCINEX [Concomitant]
     Active Substance: GUAIFENESIN
  16. IMBRUVICA [Suspect]
     Active Substance: IBRUTINIB
     Indication: CHRONIC LYMPHOCYTIC LEUKAEMIA
     Route: 065
     Dates: start: 20161222
  17. SYMBICORT [Concomitant]
     Active Substance: BUDESONIDE\FORMOTEROL FUMARATE DIHYDRATE
  18. VITAMIN D [Concomitant]
     Active Substance: CHOLECALCIFEROL
  19. FOLIC ACID. [Concomitant]
     Active Substance: FOLIC ACID

REACTIONS (6)
  - Off label use [Unknown]
  - Muscular weakness [Unknown]
  - White blood cell count decreased [Unknown]
  - Incorrect dose administered [Unknown]
  - Peripheral swelling [Not Recovered/Not Resolved]
  - Weight decreased [Unknown]

NARRATIVE: CASE EVENT DATE: 20161222
